FAERS Safety Report 11984625 (Version 1)
Quarter: 2016Q1

REPORT INFORMATION
  Report Type: Report from Study
  Country: US (occurrence: US)
  Receive Date: 20160201
  Receipt Date: 20160201
  Transmission Date: 20160526
  Serious: Yes (Other)
  Sender: FDA-Public Use
  Company Number: US-ALEXION PHARMACEUTICALS INC-A201600446

PATIENT
  Sex: Female

DRUGS (1)
  1. SOLIRIS [Suspect]
     Active Substance: ECULIZUMAB
     Indication: PAROXYSMAL NOCTURNAL HAEMOGLOBINURIA
     Dosage: 900 MG, UNK
     Route: 042

REACTIONS (7)
  - Cough [Unknown]
  - Haemolysis [Unknown]
  - Viral infection [Unknown]
  - Oropharyngeal pain [Unknown]
  - Haemoglobin decreased [Recovering/Resolving]
  - Chromaturia [Unknown]
  - Malaise [Unknown]
